FAERS Safety Report 5884985-2 (Version None)
Quarter: 2008Q3

REPORT INFORMATION
  Report Type: 
  Country: None (occurrence: None)
  Receive Date: 20080916
  Receipt Date: 20080915
  Transmission Date: 20090109
  Serious: Yes (Hospitalization)
  Sender: FDA-Public Use
  Company Number: US-BRISTOL-MYERS SQUIBB COMPANY-14335293

PATIENT
  Age: 58 Year
  Sex: Female

DRUGS (4)
  1. CYCLOPHOSPHAMIDE [Suspect]
     Dosage: FOR 4 DAYS
  2. ETOPOSIDE [Suspect]
     Dosage: FOR 3 DAYS
     Route: 042
  3. CARMUSTINE [Suspect]
     Dosage: FOR 2 DAYS
     Route: 042
  4. MESNA [Suspect]
     Dosage: FOR 4 DAYS
     Route: 042

REACTIONS (1)
  - CARDIAC DISORDER [None]
